FAERS Safety Report 4834471-3 (Version None)
Quarter: 2005Q4

REPORT INFORMATION
  Report Type: 
  Country: None (occurrence: None)
  Receive Date: 20051122
  Receipt Date: 20041210
  Transmission Date: 20060501
  Serious: No
  Sender: FDA-Public Use
  Company Number: US-BRISTOL-MYERS SQUIBB COMPANY-12793105

PATIENT
  Age: 78 Year
  Sex: Female

DRUGS (7)
  1. PRAVACHOL [Suspect]
     Indication: BLOOD CHOLESTEROL INCREASED
     Route: 048
     Dates: start: 20041126
  2. HYDROCHLOROTHIAZIDE [Concomitant]
  3. ACTONEL [Concomitant]
  4. LESCOL [Concomitant]
  5. ALPHAGAN [Concomitant]
  6. VALIUM [Concomitant]
  7. XALATAN [Concomitant]

REACTIONS (1)
  - ALOPECIA [None]
